FAERS Safety Report 23825860 (Version 9)
Quarter: 2024Q3

REPORT INFORMATION
  Report Type: Spontaneous
  Country: US (occurrence: US)
  Receive Date: 20240507
  Receipt Date: 20240827
  Transmission Date: 20241016
  Serious: Yes (Hospitalization, Other)
  Sender: PFIZER
  Company Number: US-PFIZER INC-202400100916

PATIENT
  Age: 23 Year
  Sex: Female
  Weight: 61.69 kg

DRUGS (22)
  1. DEPO-PROVERA [Suspect]
     Active Substance: MEDROXYPROGESTERONE ACETATE
     Indication: Contraception
     Dosage: 150 MG, EVERY 3 MONTHS
     Route: 030
     Dates: start: 20230823, end: 20240308
  2. DEPO-PROVERA [Suspect]
     Active Substance: MEDROXYPROGESTERONE ACETATE
     Indication: Dysmenorrhoea
  3. DEPO-PROVERA [Suspect]
     Active Substance: MEDROXYPROGESTERONE ACETATE
     Indication: Heavy menstrual bleeding
  4. TOPAMAX [Suspect]
     Active Substance: TOPIRAMATE
     Dosage: 25 MG ONCE A DAY
  5. TOPAMAX [Suspect]
     Active Substance: TOPIRAMATE
     Dosage: 50 MG TWICE A DAY
  6. LAMOTRIGINE [Suspect]
     Active Substance: LAMOTRIGINE
     Dosage: UNK
  7. EFFEXOR [Concomitant]
     Active Substance: VENLAFAXINE HYDROCHLORIDE
     Indication: Depression
     Dosage: 225 MILLIGRAMS, ONCE DAILY
  8. EFFEXOR [Concomitant]
     Active Substance: VENLAFAXINE HYDROCHLORIDE
     Indication: Anxiety
     Dosage: 250 MG, EVERY MORNING ONCE DAILY
  9. OMEPRAZOLE [Concomitant]
     Active Substance: OMEPRAZOLE
     Indication: Gastrooesophageal reflux disease
     Dosage: 40 MG, EVERY MORNING ONCE DAILY, 40 MILLIGRAMS, CAPSULE ONCE A DAY
  10. LAMICTAL [Concomitant]
     Active Substance: LAMOTRIGINE
     Indication: Affective disorder
     Dosage: 100 MG, EVERY MORNING ONCE DAILY
     Dates: end: 202407
  11. LAMICTAL [Concomitant]
     Active Substance: LAMOTRIGINE
     Indication: Migraine
     Dosage: 50 MG ONCE A DAY
     Dates: end: 20240709
  12. PRAVASTATIN [Concomitant]
     Active Substance: PRAVASTATIN
     Indication: Blood cholesterol increased
     Dosage: 25 MG, EVERY MORNING ONCE DAILY
  13. PRAVASTATIN [Concomitant]
     Active Substance: PRAVASTATIN
     Dosage: 20 MILLIGRAMS TABLET ONCE A DAY
  14. METOPROLOL [Concomitant]
     Active Substance: METOPROLOL
     Indication: Sinus tachycardia
     Dosage: 12.5 MG, EVERY MORNING ONCE DAILY
  15. METOPROLOL [Concomitant]
     Active Substance: METOPROLOL
     Indication: Heart rate increased
     Dosage: ONE HALF 20 MILLIGRAM TABLET, ONCE A DAY
  16. CLARITIN [Concomitant]
     Active Substance: LORATADINE
     Indication: Hypersensitivity
     Dosage: 10 MG, EVERY MORNING ONCE DAILY
  17. FLONASE [Concomitant]
     Active Substance: FLUTICASONE PROPIONATE
     Indication: Hypersensitivity
     Dosage: 2 PUFFS, ONCE A DAY TWO PUFFS IN EACH NOSTRIL
  18. FLONASE [Concomitant]
     Active Substance: FLUTICASONE PROPIONATE
     Dosage: 1 PUFFS PER NOSTRIL, ONCE A DAY
  19. ACETAMINOPHEN\CAFFEINE [Concomitant]
     Active Substance: ACETAMINOPHEN\CAFFEINE
     Dosage: 2 DF EVERY 4HRS DAILY
  20. ROBAXIN [Concomitant]
     Active Substance: METHOCARBAMOL
     Indication: Myalgia
     Dosage: 500 MILLIGRAM IN A TABLET AS NEEDED, ONE OR TWO TABLET
  21. MIRALAX [Concomitant]
     Active Substance: POLYETHYLENE GLYCOL 3350
     Indication: Constipation
     Dosage: LIKE A CUP OF LIQUID AS NEEDED
  22. MIRALAX [Concomitant]
     Active Substance: POLYETHYLENE GLYCOL 3350
     Dosage: 14 G, POWDER, 1 CAPFUL ONCE A DAY AS NEEDED

REACTIONS (19)
  - Migraine [Not Recovered/Not Resolved]
  - Suicidal ideation [Not Recovered/Not Resolved]
  - Pain [Not Recovered/Not Resolved]
  - Aggression [Recovered/Resolved]
  - Abnormal behaviour [Recovered/Resolved]
  - Depression [Recovered/Resolved]
  - Headache [Not Recovered/Not Resolved]
  - Hyperacusis [Recovered/Resolved]
  - Vaginal haemorrhage [Recovered/Resolved]
  - Drug level decreased [Recovered/Resolved]
  - Muscle spasms [Not Recovered/Not Resolved]
  - Stress [Unknown]
  - Fatigue [Unknown]
  - Borderline personality disorder [Unknown]
  - Panic reaction [Unknown]
  - Thermal burn [Unknown]
  - Head discomfort [Unknown]
  - Neck pain [Unknown]
  - Arthralgia [Unknown]

NARRATIVE: CASE EVENT DATE: 20231201
